FAERS Safety Report 9684576 (Version 2)
Quarter: 2013Q4

REPORT INFORMATION
  Report Type: Spontaneous
  Country: US (occurrence: US)
  Receive Date: 20131112
  Receipt Date: 20131112
  Transmission Date: 20140711
  Serious: No
  Sender: FDA-Public Use
  Company Number: US-AMGEN-USASP2013044457

PATIENT
  Age: 72 Year
  Sex: Male
  Weight: 93.42 kg

DRUGS (1)
  1. ARANESP [Suspect]
     Indication: ANAEMIA
     Dosage: 100 MUG, UNK
     Route: 058
     Dates: start: 20130522

REACTIONS (2)
  - Blood pressure increased [Recovered/Resolved]
  - Drug effect decreased [Unknown]
